FAERS Safety Report 9421963 (Version 2)
Quarter: 2013Q3

REPORT INFORMATION
  Report Type: Spontaneous
  Country: US (occurrence: US)
  Receive Date: 20130726
  Receipt Date: 20130816
  Transmission Date: 20140515
  Serious: No
  Sender: FDA-Public Use
  Company Number: US-PFIZER INC-2013217599

PATIENT
  Age: 52 Year
  Sex: Female

DRUGS (17)
  1. EFFEXOR XR [Suspect]
     Dosage: 37.5 MG, DAILY
     Dates: start: 20101215
  2. EFFEXOR [Suspect]
     Indication: DEPRESSION
     Dosage: 37.5 MG, DAILY
     Route: 048
     Dates: start: 20101215, end: 201012
  3. EFFEXOR [Suspect]
     Indication: ANXIETY
  4. SOMA [Suspect]
     Dosage: UNK
  5. VICODIN [Suspect]
     Dosage: UNK
  6. ABILIFY [Suspect]
     Indication: DEPRESSION
     Dosage: 5 MG, DAILY
     Route: 048
     Dates: start: 20110819, end: 20110823
  7. ABILIFY [Suspect]
     Indication: ANXIETY
  8. ABILIFY [Suspect]
     Indication: BIPOLAR DISORDER
  9. PROPRANOLOL [Concomitant]
     Dosage: UNK, 2X/DAY
  10. NORVASC [Concomitant]
     Dosage: UNK, DAILY
     Route: 042
  11. ASACOL [Concomitant]
     Dosage: UNK, 2X/DAY
  12. SIMVASTATIN [Concomitant]
     Dosage: UNK
  13. METOCLOPRAMIDE [Concomitant]
     Dosage: UNK, 4X/DAY
     Route: 042
  14. AMITRIPTYLINE [Concomitant]
     Dosage: UNK
  15. FISH OIL [Concomitant]
     Dosage: UNK
  16. LYRICA [Concomitant]
     Dosage: 50 (UNSPECIFIED UNIT), 3X/DAY
  17. BUSPIRONE [Concomitant]
     Dosage: 5 (UNSPECIFIED UNIT), 2X/DAY
     Dates: start: 20110819

REACTIONS (4)
  - Drug hypersensitivity [Unknown]
  - Dependence [Unknown]
  - Palpitations [Recovered/Resolved]
  - Drug intolerance [Unknown]
